FAERS Safety Report 18507055 (Version 1)
Quarter: 2020Q4

REPORT INFORMATION
  Report Type: Report from Study
  Country: US (occurrence: US)
  Receive Date: 20201116
  Receipt Date: 20201116
  Transmission Date: 20210114
  Serious: Yes (Hospitalization)
  Sender: FDA-Public Use
  Company Number: US-BRISTOL-MYERS SQUIBB COMPANY-BMS-2020-095163

PATIENT
  Age: 44 Year
  Sex: Female
  Weight: 79.37 kg

DRUGS (1)
  1. NIVOLUMAB [Suspect]
     Active Substance: NIVOLUMAB
     Indication: BREAST CANCER
     Dosage: UNK, Q3WK
     Route: 042
     Dates: start: 20200428, end: 20200811

REACTIONS (1)
  - Pulmonary resection [Unknown]

NARRATIVE: CASE EVENT DATE: 20201109
